FAERS Safety Report 24897681 (Version 1)
Quarter: 2025Q1

REPORT INFORMATION
  Report Type: Spontaneous
  Country: US (occurrence: US)
  Receive Date: 20250129
  Receipt Date: 20250129
  Transmission Date: 20250409
  Serious: No
  Sender: ROCHE
  Company Number: US-ROCHE-10000152087

PATIENT
  Age: 17 Year
  Sex: Female
  Weight: 80.29 kg

DRUGS (1)
  1. ACTEMRA [Suspect]
     Active Substance: TOCILIZUMAB
     Indication: Juvenile idiopathic arthritis
     Route: 058
     Dates: start: 20240811, end: 202412

REACTIONS (6)
  - Drug ineffective [Unknown]
  - Needle issue [Unknown]
  - Product dispensing error [Unknown]
  - Device issue [Unknown]
  - No adverse event [Unknown]
  - Product dose omission issue [Unknown]

NARRATIVE: CASE EVENT DATE: 20241202
